FAERS Safety Report 20607342 (Version 1)
Quarter: 2022Q1

REPORT INFORMATION
  Report Type: Spontaneous
  Country: US (occurrence: US)
  Receive Date: 20220317
  Receipt Date: 20220317
  Transmission Date: 20220423
  Serious: Yes (Hospitalization)
  Sender: FDA-Public Use
  Company Number: US-Global Blood Therapeutics Inc-US-GBT-22-01223

PATIENT
  Age: 38 Year
  Sex: Female

DRUGS (1)
  1. OXBRYTA [Suspect]
     Active Substance: VOXELOTOR
     Indication: Sickle cell disease
     Route: 048
     Dates: end: 202202

REACTIONS (3)
  - Pneumonia [Unknown]
  - Acute chest syndrome [Unknown]
  - Therapy cessation [Unknown]

NARRATIVE: CASE EVENT DATE: 20220201
